FAERS Safety Report 7595179-7 (Version None)
Quarter: 2011Q2

REPORT INFORMATION
  Report Type: 
  Country: None (occurrence: None)
  Receive Date: 20110620
  Receipt Date: 20110428
  Transmission Date: 20111010
  Serious: Yes (Death)
  Sender: FDA-Public Use
  Company Number: UTC-006745

PATIENT
  Age: 70 Year
  Sex: Male
  Weight: 96 kg

DRUGS (5)
  1. TYVASO (6 MICROGRAM, AEROSOL FOR INHALATION) (TREPROSTINIL SODIUIM) [Suspect]
     Indication: PULMONARY ARTERIAL HYPERTENSION
     Dosage: 18-72 MICROGRAM, INHALATION
     Route: 055
     Dates: start: 20110124
  2. ADCIRCA [Concomitant]
  3. ASPIRIN [Concomitant]
  4. COUMADIN [Concomitant]
  5. DIURETICS (DIURETICS) [Concomitant]

REACTIONS (2)
  - HEADACHE [None]
  - PULMONARY ARTERIAL HYPERTENSION [None]
